FAERS Safety Report 16308398 (Version 1)
Quarter: 2019Q2

REPORT INFORMATION
  Report Type: Spontaneous
  Country: US (occurrence: US)
  Receive Date: 20190514
  Receipt Date: 20190514
  Transmission Date: 20190711
  Serious: Yes (Hospitalization, Other)
  Sender: FDA-Public Use
  Company Number: US-VIRTUS PHARMACEUTICALS, LLC-2019VTS00025

PATIENT
  Age: 58 Year
  Sex: Female

DRUGS (2)
  1. ALBUTEROL. [Suspect]
     Active Substance: ALBUTEROL
     Dosage: 7 DOSAGE UNITS (PUFFS), ONCE
  2. ALBUTEROL. [Suspect]
     Active Substance: ALBUTEROL
     Indication: ASTHMA
     Dosage: UNK UNK, AS NEEDED

REACTIONS (4)
  - Overdose [Recovered/Resolved]
  - Stress cardiomyopathy [Recovered/Resolved]
  - Hypotension [Recovered/Resolved]
  - Unresponsive to stimuli [Recovered/Resolved]
